FAERS Safety Report 7885039-6 (Version None)
Quarter: 2011Q4

REPORT INFORMATION
  Report Type: 
  Country: None (occurrence: None)
  Receive Date: 20111102
  Receipt Date: 20111024
  Transmission Date: 20120403
  Serious: Yes (Hospitalization)
  Sender: FDA-Public Use
  Company Number: FR-ASTRAZENECA-2011SE57617

PATIENT
  Sex: Female

DRUGS (8)
  1. PREVISCAN [Concomitant]
     Route: 048
     Dates: start: 20110601
  2. PYOSTACINE [Interacting]
     Route: 048
     Dates: start: 20110801, end: 20110810
  3. PAROXETINE HCL [Concomitant]
     Route: 048
     Dates: start: 20110601
  4. COLCHICINE [Interacting]
     Route: 048
     Dates: start: 20110808, end: 20110811
  5. NEXIUM [Suspect]
     Route: 048
     Dates: start: 20110601, end: 20110815
  6. CORDARONE [Concomitant]
  7. BISOPROLOL FUMARATE [Concomitant]
     Route: 048
     Dates: start: 20110601
  8. VALSARTAN [Concomitant]
     Route: 048
     Dates: start: 20110601

REACTIONS (2)
  - DRUG INTERACTION [None]
  - PANCYTOPENIA [None]
